FAERS Safety Report 13640169 (Version 2)
Quarter: 2017Q2

REPORT INFORMATION
  Report Type: Spontaneous
  Country: US (occurrence: US)
  Receive Date: 20170609
  Receipt Date: 20170616
  Transmission Date: 20170830
  Serious: Yes (Other)
  Sender: FDA-Public Use
  Company Number: US-BAXALTA-2017BLT005383

PATIENT
  Age: 65 Year
  Sex: Female

DRUGS (3)
  1. FLEXBUMIN [Suspect]
     Active Substance: ALBUMIN HUMAN
     Indication: HYPOVOLAEMIA
     Dosage: 12.5 G, UNK
     Route: 042
     Dates: start: 20170603, end: 20170603
  2. HEPARIN [Concomitant]
     Active Substance: HEPARIN SODIUM
     Indication: PRODUCT USED FOR UNKNOWN INDICATION
  3. NORMAL SALINE [Concomitant]
     Active Substance: SODIUM CHLORIDE
     Indication: PRODUCT USED FOR UNKNOWN INDICATION
     Dosage: UNK

REACTIONS (4)
  - Product contamination [Unknown]
  - Bacteraemia [Recovering/Resolving]
  - Suspected transmission of an infectious agent via product [Unknown]
  - Arthralgia [Unknown]

NARRATIVE: CASE EVENT DATE: 20170603
